FAERS Safety Report 4555967-8 (Version None)
Quarter: 2005Q1

REPORT INFORMATION
  Report Type: 
  Country: None (occurrence: None)
  Receive Date: 20050119
  Receipt Date: 20050105
  Transmission Date: 20050727
  Serious: Yes (Other)
  Sender: FDA-Public Use
  Company Number: JP-JNJFOC-20050100620

PATIENT
  Age: 39 Year
  Sex: Female

DRUGS (5)
  1. OFLOXACIN [Suspect]
     Indication: PELVIC INFLAMMATORY DISEASE
     Route: 049
     Dates: start: 20031001, end: 20031014
  2. METRONIDAZOLE [Suspect]
     Indication: PELVIC INFLAMMATORY DISEASE
     Route: 049
  3. DAFALGAN [Concomitant]
     Indication: PELVIC PAIN
     Route: 049
  4. DOLIPRANE [Concomitant]
     Indication: PELVIC PAIN
     Route: 049
  5. ANAUSIN [Concomitant]
     Indication: NAUSEA
     Route: 049
     Dates: start: 20031004, end: 20031006

REACTIONS (3)
  - ALANINE AMINOTRANSFERASE INCREASED [None]
  - ASPARTATE AMINOTRANSFERASE INCREASED [None]
  - PELVIC PAIN [None]
